FAERS Safety Report 5096524-7 (Version None)
Quarter: 2006Q3

REPORT INFORMATION
  Report Type: 
  Country: None (occurrence: None)
  Receive Date: 20060830
  Receipt Date: 20060823
  Transmission Date: 20061208
  Serious: No
  Sender: FDA-Public Use
  Company Number: E2020-00360-SPO-GB

PATIENT
  Age: 51 Year
  Sex: Female

DRUGS (2)
  1. ARICEPT [Suspect]
     Indication: DEMENTIA ALZHEIMER'S TYPE
     Dosage: 10 MG, 1 IN 1 D, ORAL
     Route: 048
     Dates: start: 20030801
  2. CITALOPRAM HYDROBROMIDE [Concomitant]

REACTIONS (3)
  - MUSCLE TWITCHING [None]
  - MYOCLONUS [None]
  - NONSPECIFIC REACTION [None]
